FAERS Safety Report 17056662 (Version 1)
Quarter: 2019Q4

REPORT INFORMATION
  Report Type: Other
  Country: GB (occurrence: GB)
  Receive Date: 20191121
  Receipt Date: 20191121
  Transmission Date: 20200122
  Serious: Yes (Disabling)
  Sender: FDA-Public Use
  Company Number: GB-EMCURE PHARMACEUTICALS LTD-2014-EPL-0021

PATIENT
  Age: 69 Year
  Sex: Male
  Weight: 83 kg

DRUGS (4)
  1. FLEXITOL HEEL [Concomitant]
     Dates: start: 20131125, end: 20140901
  2. METFORMIN [Suspect]
     Active Substance: METFORMIN HYDROCHLORIDE
     Indication: PRODUCT USED FOR UNKNOWN INDICATION
  3. AMLODIPINE [Concomitant]
     Active Substance: AMLODIPINE BESYLATE
     Dates: start: 20140627, end: 20140822
  4. ATORVASTATIN [Concomitant]
     Active Substance: ATORVASTATIN
     Dates: start: 20140627, end: 20140822

REACTIONS (2)
  - Nocturia [Recovered/Resolved]
  - Pollakiuria [Recovered/Resolved]

NARRATIVE: CASE EVENT DATE: 20140731
